FAERS Safety Report 7096369-2 (Version None)
Quarter: 2010Q4

REPORT INFORMATION
  Report Type: 
  Country: None (occurrence: None)
  Receive Date: 20101109
  Receipt Date: 20101109
  Transmission Date: 20110411
  Serious: Yes (Life-Threatening, Disabling)
  Sender: FDA-Public Use
  Company Number: None

PATIENT
  Age: 42 Year
  Sex: Male
  Weight: 112.4921 kg

DRUGS (3)
  1. LOSARTAN POTASSIUM [Suspect]
     Indication: DIABETIC NEUROPATHY
     Dosage: 50 MG QD PO
     Route: 048
     Dates: start: 20101004, end: 20101102
  2. LOSARTAN POTASSIUM [Suspect]
     Indication: HYPERTENSION
     Dosage: 50 MG QD PO
     Route: 048
     Dates: start: 20101004, end: 20101102
  3. COZAAR [Suspect]

REACTIONS (3)
  - ANGIOEDEMA [None]
  - PRODUCT SUBSTITUTION ISSUE [None]
  - URTICARIA [None]
